FAERS Safety Report 20195042 (Version 1)
Quarter: 2021Q4

REPORT INFORMATION
  Report Type: Spontaneous
  Country: US (occurrence: None)
  Receive Date: 20211216
  Receipt Date: 20211216
  Transmission Date: 20220304
  Serious: No
  Sender: FDA-Public Use
  Company Number: None

PATIENT
  Sex: Female

DRUGS (1)
  1. GLATIRAMER ACETATE [Suspect]
     Active Substance: GLATIRAMER ACETATE
     Indication: Multiple sclerosis
     Dosage: FREQUENCY : TWICE A DAY;?
     Route: 058
     Dates: start: 20200408, end: 202108

REACTIONS (5)
  - Drug hypersensitivity [None]
  - Anaphylactic reaction [None]
  - Product substitution issue [None]
  - Therapy interrupted [None]
  - Condition aggravated [None]
